FAERS Safety Report 13115044 (Version 1)
Quarter: 2017Q1

REPORT INFORMATION
  Report Type: Spontaneous
  Country: US (occurrence: US)
  Receive Date: 20170113
  Receipt Date: 20170113
  Transmission Date: 20170428
  Serious: No
  Sender: FDA-Public Use
  Company Number: US-009507513-1701USA003217

PATIENT

DRUGS (1)
  1. PROVENTIL [Suspect]
     Active Substance: ALBUTEROL
     Dosage: 90 MICROGRAM, UNKNOWN
     Route: 055

REACTIONS (3)
  - No adverse event [Unknown]
  - Drug dose omission [Unknown]
  - Product quality issue [Unknown]
